FAERS Safety Report 13962814 (Version 1)
Quarter: 2017Q3

REPORT INFORMATION
  Report Type: Spontaneous
  Country: US (occurrence: US)
  Receive Date: 20170913
  Receipt Date: 20170913
  Transmission Date: 20171128
  Serious: Yes (Hospitalization, Other)
  Sender: FDA-Public Use
  Company Number: US-ENDO PHARMACEUTICALS INC-2017-004815

PATIENT
  Age: 25 Month
  Sex: Male

DRUGS (1)
  1. MORPHINE SULFATE ER [Suspect]
     Active Substance: MORPHINE SULFATE
     Indication: PRODUCT USED FOR UNKNOWN INDICATION
     Dosage: UNK UNK, UNKNOWN
     Route: 048

REACTIONS (5)
  - Hydrocephalus [Recovered/Resolved]
  - Brain oedema [Recovered/Resolved]
  - Accidental exposure to product by child [Unknown]
  - Brain herniation [Recovered/Resolved with Sequelae]
  - Toxicity to various agents [Unknown]
